FAERS Safety Report 8508538-2 (Version None)
Quarter: 2012Q3

REPORT INFORMATION
  Report Type: 
  Country: None (occurrence: None)
  Receive Date: 20120713
  Receipt Date: 20120629
  Transmission Date: 20120928
  Serious: Yes (Other)
  Sender: FDA-Public Use
  Company Number: IT-MYLANLABS-2012S1013448

PATIENT
  Sex: Female

DRUGS (1)
  1. RISPERIDONE [Suspect]
     Indication: SCHIZOPHRENIA
     Dosage: 4 - 6 MG/DAY
     Route: 048
     Dates: start: 20010101

REACTIONS (4)
  - HYPERPROLACTINAEMIA [None]
  - OSTEOPENIA [None]
  - OESTROGEN DEFICIENCY [None]
  - OLIGOMENORRHOEA [None]
